FAERS Safety Report 6132057-4 (Version None)
Quarter: 2009Q1

REPORT INFORMATION
  Report Type: 
  Country: None (occurrence: None)
  Receive Date: 20090325
  Receipt Date: 20090324
  Transmission Date: 20090719
  Serious: Yes (Other)
  Sender: FDA-Public Use
  Company Number: CA-PFIZER INC-2009161227

PATIENT

DRUGS (3)
  1. LIPITOR [Suspect]
     Dosage: 20 MG, UNK
     Route: 048
     Dates: start: 20070101
  2. METFORMIN [Concomitant]
     Indication: DIABETES MELLITUS
     Dosage: UNK
  3. VITAMIN B COMPLEX CAP [Concomitant]

REACTIONS (1)
  - HEPATIC CIRRHOSIS [None]
